FAERS Safety Report 9449716 (Version 2)
Quarter: 2013Q3

REPORT INFORMATION
  Report Type: Spontaneous
  Country: DK (occurrence: DK)
  Receive Date: 20130809
  Receipt Date: 20130824
  Transmission Date: 20140515
  Serious: Yes (Other)
  Sender: FDA-Public Use
  Company Number: DK-ACCORD-018870

PATIENT
  Age: 73 Year
  Sex: Male

DRUGS (1)
  1. MITOMYCIN [Suspect]
     Indication: BLADDER CANCER
     Dosage: 40 MG MMC IN 40 ML NACL
     Route: 043

REACTIONS (2)
  - Impaired healing [Unknown]
  - Off label use [Unknown]
